FAERS Safety Report 14388558 (Version 1)
Quarter: 2018Q1

REPORT INFORMATION
  Report Type: Spontaneous
  Country: US (occurrence: US)
  Receive Date: 20180115
  Receipt Date: 20180115
  Transmission Date: 20180509
  Serious: No
  Sender: FDA-Public Use
  Company Number: US-ELI_LILLY_AND_COMPANY-US201801004798

PATIENT
  Age: 35 Year
  Sex: Female

DRUGS (5)
  1. NORETHINDRONE                      /00044901/ [Suspect]
     Active Substance: NORETHINDRONE
     Indication: HOT FLUSH
     Dosage: UNK, UNKNOWN
     Route: 048
     Dates: start: 20170803, end: 201708
  2. LUPRON DEPOT [Suspect]
     Active Substance: LEUPROLIDE ACETATE
     Indication: ENDOMETRIOSIS
     Dosage: 1 DF, MONTHLY (1/M)
     Route: 065
     Dates: start: 20170803
  3. CYMBALTA [Suspect]
     Active Substance: DULOXETINE HYDROCHLORIDE
     Indication: DEPRESSION
     Dosage: 30 MG, DAILY
     Route: 065
     Dates: end: 20171110
  4. NORETHINDRONE                      /00044901/ [Suspect]
     Active Substance: NORETHINDRONE
     Indication: NIGHT SWEATS
     Dosage: UNK, UNKNOWN
     Route: 048
     Dates: start: 201711
  5. DICLOFENAC                         /00372302/ [Concomitant]
     Active Substance: DICLOFENAC
     Indication: PAIN
     Dosage: UNK, UNKNOWN
     Route: 048

REACTIONS (10)
  - Memory impairment [Not Recovered/Not Resolved]
  - Disorientation [Not Recovered/Not Resolved]
  - Libido decreased [Not Recovered/Not Resolved]
  - Hot flush [Not Recovered/Not Resolved]
  - Headache [Not Recovered/Not Resolved]
  - Night sweats [Not Recovered/Not Resolved]
  - Insomnia [Not Recovered/Not Resolved]
  - Mood swings [Recovering/Resolving]
  - Feeling abnormal [Not Recovered/Not Resolved]
  - Depression [Recovering/Resolving]

NARRATIVE: CASE EVENT DATE: 201708
